FAERS Safety Report 7290517-7 (Version None)
Quarter: 2011Q1

REPORT INFORMATION
  Report Type: 
  Country: None (occurrence: None)
  Receive Date: 20110214
  Receipt Date: 20110209
  Transmission Date: 20110831
  Serious: No
  Sender: FDA-Public Use
  Company Number: US-PFIZER INC-2010159922

PATIENT
  Sex: Female
  Weight: 89.8 kg

DRUGS (3)
  1. ULTRAM [Concomitant]
     Indication: PAIN
     Dosage: UNK
     Dates: start: 20070101
  2. NEURONTIN [Suspect]
     Indication: INSOMNIA
     Dosage: 300 MG, UNK
     Dates: start: 20101001
  3. NEURONTIN [Suspect]
     Indication: NEURALGIA
     Dosage: 100 MG, DAILY
     Route: 048
     Dates: start: 20100901, end: 20100101

REACTIONS (2)
  - METRORRHAGIA [None]
  - DRUG INEFFECTIVE [None]
